FAERS Safety Report 9261481 (Version 1)
Quarter: 2013Q2

REPORT INFORMATION
  Report Type: Spontaneous
  Country: US (occurrence: US)
  Receive Date: 20130429
  Receipt Date: 20130429
  Transmission Date: 20140414
  Serious: Yes (Hospitalization)
  Sender: FDA-Public Use
  Company Number: US-BRISTOL-MYERS SQUIBB COMPANY-18808469

PATIENT
  Age: 53 Year
  Sex: Male
  Weight: 92.97 kg

DRUGS (2)
  1. BYDUREON [Suspect]
  2. METFORMIN [Concomitant]

REACTIONS (3)
  - Cholelithiasis [Unknown]
  - Diarrhoea [Unknown]
  - Weight decreased [Not Recovered/Not Resolved]
